FAERS Safety Report 25904115 (Version 1)
Quarter: 2025Q4

REPORT INFORMATION
  Report Type: Spontaneous
  Country: EU (occurrence: EU)
  Receive Date: 20251010
  Receipt Date: 20251010
  Transmission Date: 20260117
  Serious: Yes (Other)
  Sender: BOEHRINGER INGELHEIM
  Company Number: EU-BoehringerIngelheim-2025-BI-099626

PATIENT
  Sex: Female
  Weight: 48 kg

DRUGS (7)
  1. OFEV [Suspect]
     Active Substance: NINTEDANIB
     Indication: Hypersensitivity pneumonitis
     Dosage: 1-0-1
  2. OFEV [Suspect]
     Active Substance: NINTEDANIB
     Indication: Pulmonary hypertension
  3. MYCOPHENOLATE MOFETIL [Concomitant]
     Active Substance: MYCOPHENOLATE MOFETIL
     Dosage: 1-0-1
  4. SILDENAFIL [Concomitant]
     Active Substance: SILDENAFIL
     Dosage: 1-1-1
  5. Fluticason+Formoterol [Concomitant]
     Dosage: 125/ 5MCG 2-0-2
  6. LEVOCETIRIZINE DIHYDROCHLORIDE [Concomitant]
     Active Substance: LEVOCETIRIZINE DIHYDROCHLORIDE
     Dosage: 1-0-0
  7. OXYGEN [Concomitant]
     Active Substance: OXYGEN

REACTIONS (4)
  - Disease progression [Unknown]
  - Pulmonary fibrosis [Unknown]
  - Vomiting [Unknown]
  - Diarrhoea [Unknown]
